FAERS Safety Report 12677415 (Version 1)
Quarter: 2016Q3

REPORT INFORMATION
  Report Type: Spontaneous
  Country: GB (occurrence: GB)
  Receive Date: 20160823
  Receipt Date: 20160823
  Transmission Date: 20161109
  Serious: Yes (Other)
  Sender: FDA-Public Use
  Company Number: PHHY2016GB112619

PATIENT
  Age: 59 Year
  Sex: Female
  Weight: 65.31 kg

DRUGS (1)
  1. PHENOXYMETHYLPENICILLIN [Suspect]
     Active Substance: PENICILLIN V
     Indication: OROPHARYNGEAL PAIN
     Dosage: 2 DF, QID
     Route: 048
     Dates: start: 20160804, end: 20160806

REACTIONS (1)
  - Vulvovaginal candidiasis [Not Recovered/Not Resolved]

NARRATIVE: CASE EVENT DATE: 20160806
